FAERS Safety Report 26046110 (Version 1)
Quarter: 2025Q4

REPORT INFORMATION
  Report Type: Spontaneous
  Country: JP (occurrence: JP)
  Receive Date: 20251114
  Receipt Date: 20251114
  Transmission Date: 20260118
  Serious: Yes (Other)
  Sender: PHARMACOSMOS A/S
  Company Number: JP-NEBO-713513

PATIENT
  Age: 42 Year
  Sex: Female

DRUGS (2)
  1. FERRIC DERISOMALTOSE [Suspect]
     Active Substance: FERRIC DERISOMALTOSE
     Indication: Iron deficiency anaemia
  2. LEVOTHYROXINE SODIUM [Concomitant]
     Active Substance: LEVOTHYROXINE SODIUM

REACTIONS (3)
  - Pyrexia [Recovered/Resolved]
  - Maternal exposure during pregnancy [Recovered/Resolved]
  - Premature delivery [Unknown]
